FAERS Safety Report 6970932-9 (Version None)
Quarter: 2010Q3

REPORT INFORMATION
  Report Type: 
  Country: None (occurrence: None)
  Receive Date: 20100908
  Receipt Date: 20100825
  Transmission Date: 20110219
  Serious: Yes (Hospitalization, Other)
  Sender: FDA-Public Use
  Company Number: PHHY2010JP50204

PATIENT
  Sex: Male
  Weight: 60 kg

DRUGS (11)
  1. AFINITOR [Suspect]
     Indication: RENAL CELL CARCINOMA
     Dosage: 10 MG/DAY
     Route: 048
     Dates: start: 20100706, end: 20100713
  2. RANDA [Concomitant]
     Indication: METASTATIC RENAL CELL CARCINOMA
     Dosage: 80 MG
     Route: 042
     Dates: start: 20090925, end: 20090925
  3. GEMZAR [Concomitant]
     Indication: METASTATIC RENAL CELL CARCINOMA
     Dosage: 1775 MG
     Route: 042
     Dates: start: 20091013, end: 20091013
  4. SUNITINIB MALATE [Concomitant]
     Indication: METASTATIC RENAL CELL CARCINOMA
     Dosage: 50 MG
     Route: 048
     Dates: start: 20090927, end: 20091223
  5. SORAFENIB TOSILATE [Concomitant]
     Indication: METASTATIC RENAL CELL CARCINOMA
     Dosage: 800 MG
     Route: 048
     Dates: start: 20100203, end: 20100628
  6. ATARAX [Concomitant]
     Dosage: 25 MG
     Route: 030
     Dates: start: 20100801, end: 20100802
  7. OXYCONTIN [Concomitant]
     Dosage: 10 MG
     Route: 048
     Dates: start: 20100803
  8. NOVAMIN [Concomitant]
     Dosage: 15 MG
     Route: 048
     Dates: start: 20100803, end: 20100806
  9. OXINORM [Concomitant]
     Route: 048
  10. LECICARBON [Concomitant]
     Dosage: UNK
  11. PENTAZOCINE LACTATE [Concomitant]
     Dosage: 15 MG
     Route: 030
     Dates: start: 20100801, end: 20100802

REACTIONS (4)
  - ANAEMIA [None]
  - DISSEMINATED INTRAVASCULAR COAGULATION [None]
  - GAMMA-GLUTAMYLTRANSFERASE INCREASED [None]
  - MALIGNANT NEOPLASM PROGRESSION [None]
